FAERS Safety Report 5935208-7 (Version None)
Quarter: 2008Q4

REPORT INFORMATION
  Report Type: 
  Country: None (occurrence: None)
  Receive Date: 20081028
  Receipt Date: 20081016
  Transmission Date: 20090506
  Serious: Yes (Other)
  Sender: FDA-Public Use
  Company Number: 2008-03913

PATIENT

DRUGS (2)
  1. VELCADE [Suspect]
     Indication: HODGKIN'S DISEASE
     Dosage: 1MG/M2, INTRAVENOUS
     Route: 042
  2. GEMCITABINE [Suspect]
     Indication: HODGKIN'S DISEASE
     Dosage: 800 MG/M2

REACTIONS (1)
  - LUNG NEOPLASM MALIGNANT [None]
